FAERS Safety Report 4949366-4 (Version None)
Quarter: 2006Q1

REPORT INFORMATION
  Report Type: 
  Country: None (occurrence: None)
  Receive Date: 20060321
  Receipt Date: 20060307
  Transmission Date: 20060701
  Serious: Yes (Hospitalization)
  Sender: FDA-Public Use
  Company Number: US-AMGEN-US169721

PATIENT
  Sex: Male

DRUGS (1)
  1. CINACALCET [Suspect]
     Indication: HYPERPARATHYROIDISM SECONDARY
     Dates: start: 20060104, end: 20060210

REACTIONS (8)
  - ASTHENIA [None]
  - DEHYDRATION [None]
  - HYPOXIA [None]
  - MENTAL STATUS CHANGES [None]
  - PLEURITIC PAIN [None]
  - PNEUMONIA [None]
  - PNEUMONIA ASPIRATION [None]
  - STOMACH DISCOMFORT [None]
